FAERS Safety Report 12471837 (Version 1)
Quarter: 2016Q2

REPORT INFORMATION
  Report Type: Spontaneous
  Country: US (occurrence: None)
  Receive Date: 20160615
  Receipt Date: 20160615
  Transmission Date: 20160815
  Serious: Yes (Hospitalization)
  Sender: FDA-Public Use
  Company Number: None

PATIENT
  Age: 52 Year
  Sex: Female
  Weight: 77 kg

DRUGS (2)
  1. XANAX [Suspect]
     Active Substance: ALPRAZOLAM
     Indication: ANXIETY
     Dosage: CHRONIC
     Route: 048
  2. METHADONE [Suspect]
     Active Substance: METHADONE HYDROCHLORIDE
     Indication: PAIN
     Dosage: CHRONIC
     Route: 048

REACTIONS (5)
  - Unresponsive to stimuli [None]
  - Overdose [None]
  - Pneumonitis [None]
  - Mental impairment [None]
  - Myocardial infarction [None]

NARRATIVE: CASE EVENT DATE: 20150928
